FAERS Safety Report 10462964 (Version 1)
Quarter: 2014Q3

REPORT INFORMATION
  Report Type: Spontaneous
  Country: JP (occurrence: JP)
  Receive Date: 20140918
  Receipt Date: 20140918
  Transmission Date: 20150326
  Serious: Yes (Death, Other)
  Sender: FDA-Public Use
  Company Number: PHHY2014JP118214

PATIENT
  Age: 62 Year
  Sex: Male

DRUGS (1)
  1. SULFAMETHOXAZOLE AND TRIMETHOPRIM [Suspect]
     Active Substance: SULFAMETHOXAZOLE\TRIMETHOPRIM

REACTIONS (11)
  - Renal failure acute [Unknown]
  - Multi-organ failure [Fatal]
  - Renal tubular necrosis [Unknown]
  - Human herpesvirus 6 infection [Unknown]
  - Drug reaction with eosinophilia and systemic symptoms [Unknown]
  - Lymphocytic infiltration [Unknown]
  - Lymphadenopathy [Unknown]
  - Tubulointerstitial nephritis [Unknown]
  - Pyrexia [Unknown]
  - Opportunistic infection [Fatal]
  - Erythema [Unknown]
